FAERS Safety Report 14670892 (Version 1)
Quarter: 2018Q1

REPORT INFORMATION
  Report Type: Spontaneous
  Country: US (occurrence: US)
  Receive Date: 20180321
  Receipt Date: 20180321
  Transmission Date: 20180509
  Serious: Yes (Hospitalization)
  Sender: FDA-Public Use
  Company Number: None

PATIENT
  Age: 56 Year
  Sex: Male
  Weight: 97.52 kg

DRUGS (1)
  1. GABAPENTIN. [Suspect]
     Active Substance: GABAPENTIN
     Indication: TREMOR
     Route: 048
     Dates: start: 20171127, end: 20171205

REACTIONS (4)
  - Muscle spasms [None]
  - Hypotension [None]
  - Tremor [None]
  - Myoclonus [None]

NARRATIVE: CASE EVENT DATE: 20171204
